FAERS Safety Report 4876019-3 (Version None)
Quarter: 2006Q1

REPORT INFORMATION
  Report Type: 
  Country: None (occurrence: None)
  Receive Date: 20060109
  Receipt Date: 20051228
  Transmission Date: 20060701
  Serious: Yes (Disabling)
  Sender: FDA-Public Use
  Company Number: CH-SANOFI-SYNTHELABO-A01200509064

PATIENT
  Age: 33 Year
  Sex: Male

DRUGS (1)
  1. ZOLPIDEM TARTRATE [Suspect]
     Indication: DRUG USE FOR UNKNOWN INDICATION
     Route: 048
     Dates: end: 20051202

REACTIONS (2)
  - DELIRIUM [None]
  - DYSTONIA [None]
